FAERS Safety Report 7964259-6 (Version None)
Quarter: 2011Q4

REPORT INFORMATION
  Report Type: 
  Country: None (occurrence: None)
  Receive Date: 20111208
  Receipt Date: 20111128
  Transmission Date: 20120403
  Serious: Yes (Death)
  Sender: FDA-Public Use
  Company Number: US-GENZYME-CERZ-1002326

PATIENT
  Sex: Female
  Weight: 80 kg

DRUGS (1)
  1. CEREZYME [Suspect]
     Indication: GAUCHER'S DISEASE
     Dosage: 4800 U, Q2W
     Route: 042
     Dates: start: 19950101

REACTIONS (1)
  - DEATH [None]
